FAERS Safety Report 7540932-9 (Version None)
Quarter: 2011Q2

REPORT INFORMATION
  Report Type: 
  Country: None (occurrence: None)
  Receive Date: 20110610
  Receipt Date: 20110602
  Transmission Date: 20111010
  Serious: Yes (Hospitalization)
  Sender: FDA-Public Use
  Company Number: US-B.I. PHARMACEUTICALS,INC./RIDGEFIELD-2011-BP-10751BP

PATIENT
  Age: 72 Year
  Sex: Female

DRUGS (17)
  1. GUAIFENESIN [Concomitant]
     Route: 048
  2. PRADAXA [Suspect]
     Indication: ATRIAL FIBRILLATION
     Dosage: 300 MG
     Route: 048
     Dates: start: 20110106
  3. DILTIAZEM [Concomitant]
     Dosage: 180 MG
     Route: 048
  4. DELSYM [Concomitant]
     Route: 048
  5. ASPIRIN [Concomitant]
     Dosage: 81 MG
     Route: 048
  6. XANAX [Concomitant]
     Indication: INSOMNIA
  7. XANAX [Concomitant]
     Indication: ANXIETY
  8. VITAMIN B-12 [Concomitant]
  9. FLECAINIDE ACETATE [Concomitant]
     Indication: ATRIAL FIBRILLATION
     Dosage: 200 MG
     Route: 048
  10. OMEPRAZOLE [Concomitant]
     Indication: ABDOMINAL DISCOMFORT
     Route: 048
  11. VITAMIN B [Concomitant]
  12. LEVOTHYROXINE SODIUM [Concomitant]
     Indication: HYPOTHYROIDISM
     Dosage: 100 MCG
  13. FISH OIL [Concomitant]
     Route: 048
  14. PROBIOTIC [Concomitant]
  15. CALCIUM CARBONATE [Concomitant]
  16. RED RICE YEAST [Concomitant]
     Route: 048
  17. WARFARIN SODIUM [Concomitant]
     Dosage: 5 MG
     Route: 048

REACTIONS (3)
  - HEART RATE INCREASED [None]
  - ATRIAL FIBRILLATION [None]
  - ARRHYTHMIA [None]
